FAERS Safety Report 14401229 (Version 1)
Quarter: 2018Q1

REPORT INFORMATION
  Report Type: Spontaneous
  Country: US (occurrence: US)
  Receive Date: 20180117
  Receipt Date: 20180117
  Transmission Date: 20180509
  Serious: No
  Sender: FDA-Public Use
  Company Number: US-PFIZER INC-2018019059

PATIENT
  Age: 45 Year
  Sex: Female

DRUGS (1)
  1. XELJANZ [Suspect]
     Active Substance: TOFACITINIB CITRATE
     Indication: RHEUMATOID ARTHRITIS
     Dosage: 5 MG, TWICE A DAY (60/BTL)
     Route: 048
     Dates: start: 2016

REACTIONS (3)
  - Plantar fasciitis [Unknown]
  - Gastroenteritis viral [Unknown]
  - Tendonitis [Unknown]

NARRATIVE: CASE EVENT DATE: 20180101
